FAERS Safety Report 13870330 (Version 1)
Quarter: 2017Q3

REPORT INFORMATION
  Report Type: Spontaneous
  Country: US (occurrence: None)
  Receive Date: 20170811
  Receipt Date: 20170811
  Transmission Date: 20171127
  Serious: Yes (Other)
  Sender: FDA-Public Use
  Company Number: None

PATIENT
  Age: 72 Year
  Sex: Female
  Weight: 97.43 kg

DRUGS (15)
  1. SPIRIVA [Concomitant]
     Active Substance: TIOTROPIUM BROMIDE MONOHYDRATE
  2. TOPIRAMATE. [Concomitant]
     Active Substance: TOPIRAMATE
  3. VASALINE [Concomitant]
  4. ZOFRAN [Concomitant]
     Active Substance: ONDANSETRON HYDROCHLORIDE
  5. DALTEPRIN 15,000 IU [Suspect]
     Active Substance: DALTEPARIN
     Indication: DEEP VEIN THROMBOSIS
     Dosage: DOSE - 150 IU/KG DOSE REDUCED - 100IU/KG?FREQUENCY QD - DAYS 31-180
     Route: 058
     Dates: start: 20170731, end: 20170807
  6. SOLIFENACIN [Concomitant]
     Active Substance: SOLIFENACIN
  7. NA CL NASAL SPRAY [Concomitant]
  8. VITAMIN D2 [Concomitant]
     Active Substance: ERGOCALCIFEROL
  9. PROCHLORPERAZINE MALEATE. [Concomitant]
     Active Substance: PROCHLORPERAZINE MALEATE
  10. DALTEPRIN [Suspect]
     Active Substance: DALTEPARIN
     Indication: DEEP VEIN THROMBOSIS
     Dosage: FREQUENCY QD FOR 30+/-7 DAYS
     Route: 058
     Dates: start: 20170612, end: 20170710
  11. ATENOLOL. [Concomitant]
     Active Substance: ATENOLOL
  12. IMODIUM [Concomitant]
     Active Substance: LOPERAMIDE HYDROCHLORIDE
  13. ALBUTEROL INHALER [Concomitant]
     Active Substance: ALBUTEROL
  14. SERTRALINE [Concomitant]
     Active Substance: SERTRALINE HYDROCHLORIDE
  15. SIMVASTATIN. [Concomitant]
     Active Substance: SIMVASTATIN

REACTIONS (2)
  - Chronic kidney disease [None]
  - Hyponatraemia [None]

NARRATIVE: CASE EVENT DATE: 20170807
